FAERS Safety Report 7530919-4 (Version None)
Quarter: 2011Q2

REPORT INFORMATION
  Report Type: 
  Country: None (occurrence: None)
  Receive Date: 20110608
  Receipt Date: 20110527
  Transmission Date: 20111010
  Serious: Yes (Other)
  Sender: FDA-Public Use
  Company Number: JP-BRISTOL-MYERS SQUIBB COMPANY-15810096

PATIENT
  Age: 42 Year
  Sex: Female

DRUGS (4)
  1. XYZAL [Concomitant]
     Dates: start: 20110401
  2. METFORMIN HCL [Concomitant]
     Indication: DIABETES MELLITUS
     Dates: start: 20110401, end: 20110501
  3. METFORMIN HCL [Suspect]
     Indication: DIABETES MELLITUS
     Route: 048
     Dates: start: 20110525, end: 20110101
  4. GLIMICRON [Concomitant]
     Dates: start: 20110401

REACTIONS (1)
  - ECZEMA [None]
